FAERS Safety Report 20134198 (Version 2)
Quarter: 2021Q4

REPORT INFORMATION
  Report Type: Spontaneous
  Country: FR (occurrence: FR)
  Receive Date: 20211201
  Receipt Date: 20211206
  Transmission Date: 20220303
  Serious: Yes (Other)
  Sender: FDA-Public Use
  Company Number: FR-NOVARTISPH-NVSC2021FR265077

PATIENT
  Age: 73 Year
  Sex: Female

DRUGS (3)
  1. LENALIDOMIDE [Suspect]
     Active Substance: LENALIDOMIDE
     Indication: Plasma cell myeloma
     Dosage: 175 MG, QW (3 WEEKS/CYCLE)
     Route: 065
     Dates: end: 20210119
  2. DEXAMETHASONE [Suspect]
     Active Substance: DEXAMETHASONE
     Indication: Plasma cell myeloma
     Dosage: 40 MG, QW (4 WEEKS/CYCLE)
     Route: 065
     Dates: end: 20210119
  3. VELCADE [Suspect]
     Active Substance: BORTEZOMIB
     Indication: Plasma cell myeloma
     Dosage: 2.6 MG/M2, QW (2 WEEKS/CYCLE)
     Route: 065
     Dates: end: 20210119

REACTIONS (3)
  - Postoperative wound infection [Unknown]
  - Off label use [Unknown]
  - Product use issue [Unknown]

NARRATIVE: CASE EVENT DATE: 20210119
